FAERS Safety Report 6134783-X (Version None)
Quarter: 2009Q1

REPORT INFORMATION
  Report Type: 
  Country: None (occurrence: None)
  Receive Date: 20090327
  Receipt Date: 20090320
  Transmission Date: 20090719
  Serious: Yes (Death, Life-Threatening, Hospitalization, Other)
  Sender: FDA-Public Use
  Company Number: TR-CELGENEUS-161-C5013-08111010

PATIENT
  Sex: Female
  Weight: 82 kg

DRUGS (22)
  1. REVLIMID [Suspect]
     Indication: MULTIPLE MYELOMA
     Route: 048
     Dates: start: 20081114, end: 20081118
  2. MELPHALAN [Suspect]
     Indication: MULTIPLE MYELOMA
     Route: 065
     Dates: start: 20081114, end: 20081117
  3. PREDNISONE [Suspect]
     Indication: MULTIPLE MYELOMA
     Route: 065
     Dates: start: 20081114, end: 20081117
  4. OMEGAVEN [Concomitant]
     Indication: DRUG USE FOR UNKNOWN INDICATION
     Route: 062
  5. BACTRIM [Concomitant]
     Indication: DRUG USE FOR UNKNOWN INDICATION
     Dosage: 400/80 MG
     Route: 058
  6. DIGOXIN [Concomitant]
     Indication: DRUG USE FOR UNKNOWN INDICATION
  7. MAGNESIUM HYDROXIDE TAB [Concomitant]
     Indication: DRUG USE FOR UNKNOWN INDICATION
     Route: 065
  8. CERNEVIT MULTIVITAMIN [Concomitant]
     Route: 065
  9. PANTPAS-IV [Concomitant]
     Indication: DRUG USE FOR UNKNOWN INDICATION
     Route: 065
  10. RANIVER [Concomitant]
     Indication: DRUG USE FOR UNKNOWN INDICATION
     Dosage: 50 MG/2 ML
     Route: 065
  11. THEOSOL [Concomitant]
     Indication: DRUG USE FOR UNKNOWN INDICATION
     Dosage: 200/100 ML PVC WITHOUT SET
     Route: 065
  12. KLOROBEN [Concomitant]
     Indication: DRUG USE FOR UNKNOWN INDICATION
     Route: 048
  13. UREVER [Concomitant]
     Indication: DRUG USE FOR UNKNOWN INDICATION
     Dosage: 2ML/100 AMP
     Route: 065
  14. ADDAMEL [Concomitant]
     Indication: DRUG USE FOR UNKNOWN INDICATION
     Route: 065
  15. S-CLINOLEIC [Concomitant]
     Indication: DRUG USE FOR UNKNOWN INDICATION
     Route: 065
  16. S-ISOTONIC [Concomitant]
     Indication: DRUG USE FOR UNKNOWN INDICATION
     Route: 065
  17. S-ISOTONIC [Concomitant]
     Route: 065
  18. S-ISOTONIC [Concomitant]
     Route: 065
  19. DEXTROSE [Concomitant]
     Indication: DRUG USE FOR UNKNOWN INDICATION
     Route: 065
  20. DEXTROSE [Concomitant]
     Route: 065
  21. DEXTROSE [Concomitant]
     Route: 065
  22. ENOXAPARIN SODIUM [Concomitant]
     Indication: ANTICOAGULANT THERAPY
     Route: 058

REACTIONS (4)
  - DISEASE PROGRESSION [None]
  - LEUKAEMIA PLASMACYTIC [None]
  - PULMONARY EMBOLISM [None]
  - RIGHT VENTRICULAR FAILURE [None]
